FAERS Safety Report 10104844 (Version 3)
Quarter: 2015Q3

REPORT INFORMATION
  Report Type: Other
  Country: None (occurrence: US)
  Receive Date: 20140424
  Receipt Date: 20150825
  Transmission Date: 20151125
  Serious: Yes (Death, Other)
  Sender: FDA-Public Use
  Company Number: US-GSKPPD-2014GSK001262

PATIENT
  Age: 79 Year
  Sex: Female

DRUGS (2)
  1. AVANDAMET [Suspect]
     Active Substance: METFORMIN HYDROCHLORIDE\ROSIGLITAZONE MALEATE
     Indication: DIABETES MELLITUS
     Dosage: 2/1000 MG
     Route: 048
     Dates: start: 2006, end: 2006
  2. AVANDIA [Suspect]
     Active Substance: ROSIGLITAZONE MALEATE
     Indication: DIABETES MELLITUS
     Route: 048
     Dates: start: 2006, end: 2009

REACTIONS (2)
  - Ischaemic stroke [Fatal]
  - Sudden cardiac death [Unknown]

NARRATIVE: CASE EVENT DATE: 20091127
